FAERS Safety Report 5497426-4 (Version None)
Quarter: 2007Q4

REPORT INFORMATION
  Report Type: 
  Country: None (occurrence: None)
  Receive Date: 20071025
  Receipt Date: 20070724
  Transmission Date: 20080405
  Serious: No
  Sender: FDA-Public Use
  Company Number: US-BRISTOL-MYERS SQUIBB COMPANY-13856067

PATIENT
  Age: 51 Year
  Sex: Female

DRUGS (1)
  1. GLUCOPHAGE XR [Suspect]

REACTIONS (1)
  - BLOOD GLUCOSE FLUCTUATION [None]
